FAERS Safety Report 6239514-0 (Version None)
Quarter: 2009Q2

REPORT INFORMATION
  Report Type: 
  Country: None (occurrence: None)
  Receive Date: 20090622
  Receipt Date: 20090612
  Transmission Date: 20091009
  Serious: Yes (Other)
  Sender: FDA-Public Use
  Company Number: US-AMGEN-QUU346243

PATIENT
  Sex: Female

DRUGS (4)
  1. ENBREL [Suspect]
     Indication: PSORIATIC ARTHROPATHY
     Route: 058
     Dates: start: 20021108
  2. ENBREL [Suspect]
     Indication: PSORIASIS
  3. AZULFIDINE EN-TABS [Concomitant]
     Route: 048
  4. VITAMIN TAB [Concomitant]

REACTIONS (3)
  - ANTEPARTUM HAEMORRHAGE [None]
  - PREMATURE LABOUR [None]
  - VAGINITIS BACTERIAL [None]
